FAERS Safety Report 7037534-X (Version None)
Quarter: 2010Q4

REPORT INFORMATION
  Report Type: 
  Country: None (occurrence: None)
  Receive Date: 20101011
  Receipt Date: 20101004
  Transmission Date: 20110411
  Serious: Yes (Death, Hospitalization)
  Sender: FDA-Public Use
  Company Number: PL-CELGENEUS-129-C5013-10050663

PATIENT
  Sex: Male
  Weight: 89 kg

DRUGS (16)
  1. CC-5013 [Suspect]
     Route: 048
     Dates: start: 20100426, end: 20100507
  2. CC-5013 [Suspect]
     Indication: MANTLE CELL LYMPHOMA
  3. TAZOBACTAM [Suspect]
     Indication: PRODUCT USED FOR UNKNOWN INDICATION
     Route: 065
  4. RITUXIMAB [Suspect]
     Indication: DISEASE PROGRESSION
     Route: 065
     Dates: start: 20100501
  5. MITOXANTRONE [Suspect]
     Indication: DISEASE PROGRESSION
     Route: 065
     Dates: start: 20100501
  6. CYTARABINE [Suspect]
     Indication: DISEASE PROGRESSION
     Route: 065
     Dates: start: 20100501
  7. DEXAMETHASONE [Suspect]
     Indication: DISEASE PROGRESSION
     Route: 065
     Dates: start: 20100501
  8. METOCARD [Concomitant]
     Indication: PRODUCT USED FOR UNKNOWN INDICATION
     Route: 065
  9. RAWEL [Concomitant]
     Indication: PRODUCT USED FOR UNKNOWN INDICATION
     Route: 065
  10. LOZAP [Concomitant]
     Indication: PRODUCT USED FOR UNKNOWN INDICATION
     Route: 065
  11. FUROSEMIDE [Concomitant]
     Indication: PRODUCT USED FOR UNKNOWN INDICATION
     Route: 065
  12. EFFOX [Concomitant]
     Indication: PRODUCT USED FOR UNKNOWN INDICATION
     Route: 065
  13. BISPETOL [Concomitant]
     Indication: PRODUCT USED FOR UNKNOWN INDICATION
     Route: 065
  14. HEVIRAN [Concomitant]
     Indication: PRODUCT USED FOR UNKNOWN INDICATION
     Route: 065
  15. MILURIT [Concomitant]
     Indication: PRODUCT USED FOR UNKNOWN INDICATION
     Route: 065
  16. METOCLOPRAMIDE [Concomitant]
     Indication: PRODUCT USED FOR UNKNOWN INDICATION
     Route: 065

REACTIONS (3)
  - MULTI-ORGAN FAILURE [None]
  - SEPTIC SHOCK [None]
  - TUMOUR FLARE [None]
